FAERS Safety Report 6172349-6 (Version None)
Quarter: 2009Q2

REPORT INFORMATION
  Report Type: 
  Country: None (occurrence: None)
  Receive Date: 20090429
  Receipt Date: 20090417
  Transmission Date: 20091009
  Serious: Yes (Hospitalization, Disabling, Other)
  Sender: FDA-Public Use
  Company Number: JP-PFIZER INC-2009177374

PATIENT

DRUGS (8)
  1. ZOLOFT [Suspect]
     Indication: DEPRESSION
     Dosage: 100 MG, 2X/DAY
     Route: 048
     Dates: start: 20061104, end: 20080703
  2. PAXIL [Suspect]
     Indication: DEPRESSION
     Dosage: 40 MG, 2X/DAY
     Route: 048
     Dates: start: 20050204, end: 20080703
  3. SULPIRIDE [Concomitant]
     Route: 048
     Dates: start: 20080509, end: 20080703
  4. HALCION [Concomitant]
     Route: 048
     Dates: start: 20080529, end: 20080703
  5. FLUNITRAZEPAM [Concomitant]
     Route: 048
     Dates: start: 20080529, end: 20080703
  6. EURODIN [Concomitant]
     Route: 048
     Dates: start: 20080529, end: 20080703
  7. EVAMYL [Concomitant]
     Route: 048
     Dates: start: 20080529, end: 20080703
  8. LEVOTOMIN [Concomitant]
     Route: 048
     Dates: start: 20080529, end: 20080703

REACTIONS (5)
  - BLOOD CREATINE PHOSPHOKINASE INCREASED [None]
  - BLOOD CREATINE PHOSPHOKINASE MB INCREASED [None]
  - DRUG INEFFECTIVE [None]
  - NEUROLEPTIC MALIGNANT SYNDROME [None]
  - RENAL FAILURE [None]
